FAERS Safety Report 18779128 (Version 2)
Quarter: 2021Q1

REPORT INFORMATION
  Report Type: Spontaneous
  Country: US (occurrence: US)
  Receive Date: 20210125
  Receipt Date: 20210311
  Transmission Date: 20210419
  Serious: No
  Sender: FDA-Public Use
  Company Number: US-ASTRAZENECA-2021A005913

PATIENT
  Sex: Male

DRUGS (1)
  1. SYMBICORT [Suspect]
     Active Substance: BUDESONIDE\FORMOTEROL FUMARATE DIHYDRATE
     Dosage: SYMBICORT 80/4.5MCG UNKNOWN
     Route: 055

REACTIONS (4)
  - Device malfunction [Unknown]
  - Dyspnoea [Unknown]
  - Device issue [Unknown]
  - Therapeutic product effect decreased [Unknown]
